FAERS Safety Report 10229302 (Version 3)
Quarter: 2014Q3

REPORT INFORMATION
  Report Type: Report from Study
  Country: US (occurrence: US)
  Receive Date: 20140611
  Receipt Date: 20140820
  Transmission Date: 20150326
  Serious: Yes (Other)
  Sender: FDA-Public Use
  Company Number: US-BIOGENIDEC-2014BI054569

PATIENT
  Sex: Female

DRUGS (2)
  1. AVONEX [Suspect]
     Active Substance: INTERFERON BETA-1A
     Indication: MULTIPLE SCLEROSIS
     Route: 030
     Dates: start: 20071130, end: 20100724
  2. AVONEX [Suspect]
     Active Substance: INTERFERON BETA-1A
     Indication: MULTIPLE SCLEROSIS
     Route: 030
     Dates: start: 20140706

REACTIONS (16)
  - Convulsion [Recovered/Resolved]
  - Influenza like illness [Recovered/Resolved]
  - Anaphylactic shock [Recovered/Resolved]
  - Hemiparesis [Not Recovered/Not Resolved]
  - Chills [Recovered/Resolved]
  - Pyrexia [Recovered/Resolved]
  - Malaise [Not Recovered/Not Resolved]
  - Febrile convulsion [Recovered/Resolved]
  - Dysarthria [Recovered/Resolved]
  - Pain [Recovered/Resolved]
  - Headache [Not Recovered/Not Resolved]
  - Facial spasm [Not Recovered/Not Resolved]
  - Bone pain [Recovered/Resolved]
  - Anaemia [Not Recovered/Not Resolved]
  - Liver injury [Unknown]
  - Frustration [Not Recovered/Not Resolved]

NARRATIVE: CASE EVENT DATE: 2007
